FAERS Safety Report 23088290 (Version 1)
Quarter: 2023Q4

REPORT INFORMATION
  Report Type: Spontaneous
  Country: CA (occurrence: CA)
  Receive Date: 20231020
  Receipt Date: 20231020
  Transmission Date: 20240109
  Serious: No
  Sender: FDA-Public Use
  Company Number: CA-002147023-NVSC2023CA223681

PATIENT
  Age: 64 Year
  Sex: Male

DRUGS (1)
  1. MAYZENT [Suspect]
     Active Substance: SIPONIMOD
     Indication: Multiple sclerosis
     Dosage: 2.0 MG, QD (1 EVERY 1 DAYS)
     Route: 048

REACTIONS (2)
  - Skin lesion [Unknown]
  - Basosquamous carcinoma [Unknown]
